FAERS Safety Report 22338773 (Version 1)
Quarter: 2023Q2

REPORT INFORMATION
  Report Type: Spontaneous
  Country: US (occurrence: None)
  Receive Date: 20230517
  Receipt Date: 20230517
  Transmission Date: 20230721
  Serious: Yes (Disabling)
  Sender: FDA-Public Use
  Company Number: None

PATIENT
  Age: 59 Year
  Sex: Male
  Weight: 92.99 kg

DRUGS (2)
  1. LEVOFLOXACIN [Suspect]
     Active Substance: LEVOFLOXACIN
     Indication: Pneumonia
     Dosage: OTHER QUANTITY : 1 INJECTION(S);?OTHER FREQUENCY : OTHER;?OTHER ROUTE : OTHER;?
     Route: 050
     Dates: start: 20230228, end: 20230328
  2. REPATHA [Suspect]
     Active Substance: EVOLOCUMAB

REACTIONS (27)
  - Paraplegia [None]
  - Asthenia [None]
  - Myopathy [None]
  - Neuropathy peripheral [None]
  - Arthralgia [None]
  - Myalgia [None]
  - Rash [None]
  - Skin exfoliation [None]
  - Rash erythematous [None]
  - Arthralgia [None]
  - Joint swelling [None]
  - Joint swelling [None]
  - Joint warmth [None]
  - Pain in extremity [None]
  - Arthralgia [None]
  - Pain in extremity [None]
  - Oropharyngeal pain [None]
  - Hyperaesthesia [None]
  - Swelling face [None]
  - Bursitis [None]
  - Pain in extremity [None]
  - Swelling [None]
  - Pain in extremity [None]
  - Peripheral swelling [None]
  - Temperature intolerance [None]
  - Arthropathy [None]
  - Pain in jaw [None]

NARRATIVE: CASE EVENT DATE: 20230302
